FAERS Safety Report 16397875 (Version 1)
Quarter: 2019Q3

REPORT INFORMATION
  Report Type: Spontaneous
  Country: US (occurrence: US)
  Receive Date: 20190605
  Receipt Date: 20190605
  Transmission Date: 20191004
  Serious: No
  Sender: FDA-Public Use
  Company Number: None

PATIENT
  Age: 50 Year
  Sex: Female
  Weight: 75.15 kg

DRUGS (7)
  1. VITAMIN C [Concomitant]
     Active Substance: ASCORBIC ACID
  2. FLONASE [Concomitant]
     Active Substance: FLUTICASONE PROPIONATE
  3. ATORVASTATIN [Suspect]
     Active Substance: ATORVASTATIN
     Indication: BLOOD CHOLESTEROL INCREASED
     Dosage: ?          QUANTITY:1 TABLET(S);?
     Route: 048
     Dates: start: 20180410, end: 20190525
  4. MUCINEX [Concomitant]
     Active Substance: GUAIFENESIN
  5. ZYRTEC [Concomitant]
     Active Substance: CETIRIZINE HYDROCHLORIDE
  6. VITAMIN D [Concomitant]
     Active Substance: VITAMIN D NOS
  7. ATORVASTATIN [Suspect]
     Active Substance: ATORVASTATIN
     Indication: BLOOD TRIGLYCERIDES INCREASED
     Dosage: ?          QUANTITY:1 TABLET(S);?
     Route: 048
     Dates: start: 20180410, end: 20190525

REACTIONS (7)
  - Musculoskeletal pain [None]
  - Nodule [None]
  - Arthralgia [None]
  - Neck pain [None]
  - Myalgia [None]
  - Grip strength decreased [None]
  - Muscular weakness [None]

NARRATIVE: CASE EVENT DATE: 20190525
